FAERS Safety Report 14582159 (Version 1)
Quarter: 2018Q1

REPORT INFORMATION
  Report Type: Report from Study
  Country: FR (occurrence: FR)
  Receive Date: 20180228
  Receipt Date: 20180228
  Transmission Date: 20180509
  Serious: Yes (Death)
  Sender: FDA-Public Use
  Company Number: FR-VELOXIS PHARMACEUTICALS-2042718

PATIENT
  Age: 57 Year
  Sex: Female
  Weight: 60 kg

DRUGS (14)
  1. COAPROVEL [Concomitant]
     Active Substance: HYDROCHLOROTHIAZIDE\IRBESARTAN
     Dates: start: 20140424
  2. CHRONADALATE [Concomitant]
     Active Substance: NIFEDIPINE
     Dates: start: 20170424
  3. TAHOR [Concomitant]
     Active Substance: ATORVASTATIN CALCIUM
     Dates: start: 20171030
  4. NOVOMIX [Concomitant]
     Active Substance: INSULIN ASPART
     Dates: start: 20150817
  5. CELLCEPT [Concomitant]
     Active Substance: MYCOPHENOLATE MOFETIL\MYCOPHENOLATE MOFETIL HYDROCHLORIDE
     Dates: start: 20140723
  6. ENVARSUS XR [Suspect]
     Active Substance: TACROLIMUS
     Indication: PROPHYLAXIS AGAINST TRANSPLANT REJECTION
     Route: 048
     Dates: start: 20171031, end: 20171214
  7. ADVAGRAF [Concomitant]
     Active Substance: TACROLIMUS
     Dates: start: 20160722, end: 20170706
  8. ADVAGRAF [Concomitant]
     Active Substance: TACROLIMUS
     Dates: start: 201707, end: 20171030
  9. INEXIUM /01479302/ [Concomitant]
     Active Substance: ESOMEPRAZOLE MAGNESIUM
     Dates: start: 20120709
  10. UVEDOSE [Concomitant]
     Active Substance: CHOLECALCIFEROL
     Dates: start: 20140722
  11. CORTANCYL [Concomitant]
     Active Substance: PREDNISONE
     Dates: start: 20140723
  12. ADVAGRAF [Concomitant]
     Active Substance: TACROLIMUS
     Dates: start: 20170707, end: 201707
  13. KARDEGIC [Concomitant]
     Active Substance: ASPIRIN DL-LYSINE
     Dates: start: 20131028
  14. WELLVONE [Concomitant]
     Active Substance: ATOVAQUONE
     Dates: start: 20140505

REACTIONS (2)
  - Gastrointestinal disorder [Not Recovered/Not Resolved]
  - Lung disorder [Fatal]

NARRATIVE: CASE EVENT DATE: 20171214
